FAERS Safety Report 9646241 (Version 2)
Quarter: 2013Q4

REPORT INFORMATION
  Report Type: Spontaneous
  Country: ES (occurrence: ES)
  Receive Date: 20131025
  Receipt Date: 20131108
  Transmission Date: 20140711
  Serious: Yes (Hospitalization)
  Sender: FDA-Public Use
  Company Number: ES-009507513-1310ESP007892

PATIENT
  Age: 75 Year
  Sex: Female

DRUGS (7)
  1. COZAAR 100 MG COMPRIMIDOS RECUBIERTOS CON PELICULA [Suspect]
     Dosage: 100 MG, QD
     Route: 048
     Dates: start: 20120828
  2. RANITIDINE [Suspect]
     Dosage: 300 MG, QD
     Route: 048
     Dates: start: 20120828
  3. SECALIP [Suspect]
     Dosage: 145 MG, QD
     Route: 048
     Dates: start: 20120220
  4. PROCORALAN [Suspect]
     Dosage: 5 MG, BID
     Route: 048
     Dates: start: 20071219
  5. HUMULIN 30/70 [Suspect]
     Dosage: UNK
     Route: 058
     Dates: start: 20121108
  6. ASPIRIN [Suspect]
     Dosage: 100 MG, QD
     Route: 048
     Dates: start: 20121108
  7. PLAVIX [Suspect]
     Dosage: 75 MG, QD
     Route: 048
     Dates: start: 20060717, end: 20130126

REACTIONS (2)
  - Agranulocytosis [Recovered/Resolved]
  - Anaemia [Recovered/Resolved]
